FAERS Safety Report 11928892 (Version 1)
Quarter: 2016Q1

REPORT INFORMATION
  Report Type: Spontaneous
  Country: US (occurrence: US)
  Receive Date: 20160119
  Receipt Date: 20160119
  Transmission Date: 20160526
  Serious: Yes (Other)
  Sender: FDA-Public Use
  Company Number: US-JNJFOC-20160104565

PATIENT
  Age: 69 Year
  Sex: Female
  Weight: 58.51 kg

DRUGS (2)
  1. BENADRYL ALLERGY [Suspect]
     Active Substance: DIPHENHYDRAMINE HYDROCHLORIDE
     Indication: UPPER-AIRWAY COUGH SYNDROME
     Dosage: 1/2 TABLET AS NEEDED
     Route: 048
  2. BENADRYL ALLERGY [Suspect]
     Active Substance: DIPHENHYDRAMINE HYDROCHLORIDE
     Indication: MULTIPLE ALLERGIES
     Dosage: 1/2 TABLET AS NEEDED
     Route: 048

REACTIONS (3)
  - Urinary retention [Not Recovered/Not Resolved]
  - Product physical issue [Unknown]
  - Wrong technique in product usage process [Not Recovered/Not Resolved]
